FAERS Safety Report 9095767 (Version 3)
Quarter: 2013Q3

REPORT INFORMATION
  Report Type: Report from Study
  Country: US (occurrence: US)
  Receive Date: 20130220
  Receipt Date: 20130701
  Transmission Date: 20140515
  Serious: Yes (Other)
  Sender: FDA-Public Use
  Company Number: US-PURDUE-USA-2013-0098874

PATIENT
  Age: 49 Year
  Sex: Male

DRUGS (6)
  1. OXYCONTIN (NDA 22-272) [Suspect]
     Indication: BACK PAIN
     Dosage: 80 MG, Q12H
     Route: 048
  2. OXYCONTIN (NDA 22-272) [Suspect]
     Indication: PAIN
  3. OXYCONTIN (NDA 22-272) [Suspect]
     Indication: INTERVERTEBRAL DISC DISORDER
  4. MORPHINE SULPHATE [Concomitant]
     Indication: BREAKTHROUGH PAIN
     Dosage: 60 MG, Q4H PRN
     Route: 048
     Dates: start: 2000
  5. XANAX [Concomitant]
     Indication: ANXIETY
     Dosage: 2 MG, AT BEDTIME
     Route: 048
     Dates: start: 2000
  6. FIORICET [Concomitant]
     Indication: MIGRAINE
     Dosage: 50MG BUTALBITAL /325 MG APAP/40 MG CAFFEINE
     Route: 048
     Dates: start: 2008

REACTIONS (4)
  - Spinal fusion surgery [Unknown]
  - Intervertebral disc operation [Unknown]
  - Pain [Unknown]
  - Migraine [Not Recovered/Not Resolved]
